FAERS Safety Report 24372660 (Version 1)
Quarter: 2024Q3

REPORT INFORMATION
  Report Type: Spontaneous
  Country: US (occurrence: US)
  Receive Date: 20240927
  Receipt Date: 20240927
  Transmission Date: 20241016
  Serious: No
  Sender: PFIZER
  Company Number: US-PFIZER INC-PV202300097670

PATIENT
  Age: 70 Year
  Sex: Female
  Weight: 92.9 kg

DRUGS (9)
  1. IBRANCE [Suspect]
     Active Substance: PALBOCICLIB
     Indication: Invasive lobular breast carcinoma
     Dosage: TAKE 1 TABLET BY MOUTH DAILY, TAKE ON DAYS 1 THROUGH 21 OF EACH 28 DAY CYCLE
     Route: 048
     Dates: start: 20221027, end: 20240307
  2. IBRANCE [Suspect]
     Active Substance: PALBOCICLIB
     Indication: Breast cancer female
     Dosage: TAKE 1 TABLET (100 MG TABLET) DAILY ON DAYS 1 THRU 21 OF EACH 28 DAY CYCLE
     Route: 048
     Dates: start: 20240307
  3. IBRANCE [Suspect]
     Active Substance: PALBOCICLIB
     Indication: Breast cancer metastatic
  4. FASLODEX [Concomitant]
     Active Substance: FULVESTRANT
     Dosage: 500 MG
     Dates: start: 20221027
  5. ELIQUIS [Concomitant]
     Active Substance: APIXABAN
     Indication: Deep vein thrombosis
     Dosage: 5 MG, 2X/DAY
     Route: 048
     Dates: start: 20220914
  6. ELIQUIS [Concomitant]
     Active Substance: APIXABAN
     Indication: Jugular vein thrombosis
  7. ELIQUIS [Concomitant]
     Active Substance: APIXABAN
     Indication: Subclavian vein thrombosis
  8. ZOMETA [Concomitant]
     Active Substance: ZOLEDRONIC ACID
     Dosage: UNK
  9. ZOMETA [Concomitant]
     Active Substance: ZOLEDRONIC ACID
     Dosage: Q 6MONTH
     Dates: start: 20240307

REACTIONS (3)
  - Stomatitis [Unknown]
  - Fatigue [Unknown]
  - Dyspnoea [Unknown]

NARRATIVE: CASE EVENT DATE: 20240307
